FAERS Safety Report 10272940 (Version 1)
Quarter: 2014Q3

REPORT INFORMATION
  Report Type: Spontaneous
  Country: US (occurrence: US)
  Receive Date: 20140702
  Receipt Date: 20140702
  Transmission Date: 20150326
  Serious: Yes (Other)
  Sender: FDA-Public Use
  Company Number: US-009507513-1406USA011306

PATIENT
  Age: 25 Year
  Sex: Female
  Weight: 89.8 kg

DRUGS (1)
  1. NEXPLANON [Suspect]
     Active Substance: ETONOGESTREL
     Indication: OVARIAN CYST
     Dosage: LEFT ARM
     Route: 059
     Dates: start: 20130702

REACTIONS (7)
  - Dizziness [Unknown]
  - Implant site pain [Unknown]
  - Dysmenorrhoea [Unknown]
  - Vaginal infection [Unknown]
  - Unintended pregnancy [Unknown]
  - Nausea [Unknown]
  - Amenorrhoea [Unknown]

NARRATIVE: CASE EVENT DATE: 201308
